FAERS Safety Report 12525050 (Version 1)
Quarter: 2016Q3

REPORT INFORMATION
  Report Type: Spontaneous
  Country: FR (occurrence: FR)
  Receive Date: 20160704
  Receipt Date: 20160704
  Transmission Date: 20161109
  Serious: Yes (Other)
  Sender: FDA-Public Use
  Company Number: FR-PFIZER INC-2016317490

PATIENT
  Age: 69 Year
  Sex: Male

DRUGS (2)
  1. AMLOR [Suspect]
     Active Substance: AMLODIPINE BESYLATE
     Dosage: 5 MG, UNK
  2. CARDENSIEL [Concomitant]
     Active Substance: BISOPROLOL FUMARATE

REACTIONS (2)
  - Skin necrosis [Unknown]
  - Skin plaque [Unknown]

NARRATIVE: CASE EVENT DATE: 2016
